FAERS Safety Report 15239820 (Version 1)
Quarter: 2018Q3

REPORT INFORMATION
  Report Type: Spontaneous
  Country: US (occurrence: US)
  Receive Date: 20180710
  Receipt Date: 20180710
  Transmission Date: 20181010
  Serious: Yes (Other)
  Sender: FDA-Public Use
  Company Number: None

PATIENT
  Age: 83 Year
  Sex: Female
  Weight: 54 kg

DRUGS (8)
  1. FENTANYL. [Concomitant]
     Active Substance: FENTANYL
  2. DULCOLAX NOS [Concomitant]
     Active Substance: BISACODYL OR DOCUSATE SODIUM
  3. LACTULOSE. [Concomitant]
     Active Substance: LACTULOSE
  4. LISINOPRIL. [Concomitant]
     Active Substance: LISINOPRIL
  5. ETOPOSIDE. [Suspect]
     Active Substance: ETOPOSIDE
     Indication: FALLOPIAN TUBE NEOPLASM
     Route: 048
     Dates: start: 20180509
  6. CALCIUM [Concomitant]
     Active Substance: CALCIUM
  7. OXYCODONE [Concomitant]
     Active Substance: OXYCODONE
  8. MULTIVITAMINS [Concomitant]
     Active Substance: VITAMINS

REACTIONS (1)
  - Stomatitis [None]
